FAERS Safety Report 8881841 (Version 1)
Quarter: 2012Q4

REPORT INFORMATION
  Report Type: 
  Country: CA (occurrence: CA)
  Receive Date: 20121102
  Receipt Date: 20121102
  Transmission Date: 20130627
  Serious: Yes (Other)
  Sender: FDA-Public Use
  Company Number: CA-BRISTOL-MYERS SQUIBB COMPANY-16933079

PATIENT
  Age: 49 Year
  Sex: Female

DRUGS (7)
  1. SPRYCEL [Suspect]
     Indication: CHRONIC MYELOID LEUKAEMIA
     Dosage: currnet dose 50mg.
     Route: 048
     Dates: start: 20100910
  2. MULTIVITAMINS [Concomitant]
  3. CALCIUM [Concomitant]
  4. OMEGA 3 FATTY ACID [Concomitant]
  5. VITAMIN A [Concomitant]
  6. VITAMIN D [Concomitant]
  7. VITAMIN B [Concomitant]

REACTIONS (3)
  - Breast neoplasm [Not Recovered/Not Resolved]
  - Hypersensitivity [Unknown]
  - Swelling [Unknown]
